FAERS Safety Report 5466354-2 (Version None)
Quarter: 2007Q3

REPORT INFORMATION
  Report Type: 
  Country: None (occurrence: None)
  Receive Date: 20070920
  Receipt Date: 20070904
  Transmission Date: 20080115
  Serious: Yes (Hospitalization, Other)
  Sender: FDA-Public Use
  Company Number: 2007SP018309

PATIENT
  Sex: Female

DRUGS (2)
  1. MIRALAX [Suspect]
     Dosage: QS; PO
     Route: 048
  2. AMITIZA [Suspect]
     Indication: CONSTIPATION

REACTIONS (1)
  - COLITIS ISCHAEMIC [None]
